FAERS Safety Report 19974408 (Version 1)
Quarter: 2021Q4

REPORT INFORMATION
  Report Type: Spontaneous
  Country: CA (occurrence: CA)
  Receive Date: 20211020
  Receipt Date: 20211020
  Transmission Date: 20220303
  Serious: Yes (Other)
  Sender: FDA-Public Use
  Company Number: CA-TEVA-2021-CA-1966137

PATIENT
  Age: 85 Year
  Sex: Female

DRUGS (3)
  1. METHOTREXATE [Suspect]
     Active Substance: METHOTREXATE
     Indication: Rheumatoid arthritis
     Route: 065
  2. LEFLUNOMIDE [Concomitant]
     Active Substance: LEFLUNOMIDE
  3. RAMIPRIL [Concomitant]
     Active Substance: RAMIPRIL

REACTIONS (4)
  - Cystitis [Unknown]
  - Diarrhoea [Unknown]
  - Fatigue [Unknown]
  - Hand deformity [Unknown]
